FAERS Safety Report 11131735 (Version 1)
Quarter: 2015Q2

REPORT INFORMATION
  Report Type: Report from Study
  Country: JP (occurrence: JP)
  Receive Date: 20150522
  Receipt Date: 20150522
  Transmission Date: 20150821
  Serious: Yes (Death)
  Sender: FDA-Public Use
  Company Number: JP-OTSUKA-JP-2015-12225

PATIENT

DRUGS (6)
  1. SELARA [Concomitant]
     Active Substance: EPLERENONE
     Indication: CARDIAC FAILURE
     Dosage: 25 MG/DAY
     Route: 048
     Dates: end: 20141214
  2. NU-LOTAN [Concomitant]
     Active Substance: LOSARTAN POTASSIUM
     Indication: CARDIAC FAILURE
     Dosage: 12.5 MG/DAY
     Route: 048
     Dates: end: 20141214
  3. MAINTATE [Concomitant]
     Active Substance: BISOPROLOL FUMARATE
     Indication: CARDIAC FAILURE
     Dosage: 1.25 MG/DAY
     Route: 048
     Dates: end: 20141214
  4. LASIX M [Concomitant]
     Active Substance: FUROSEMIDE
     Indication: CARDIAC FAILURE
     Dosage: 60 MG/DAY
     Route: 048
     Dates: end: 20141214
  5. ANCARON [Concomitant]
     Active Substance: AMIODARONE HYDROCHLORIDE
     Indication: PROPHYLAXIS
     Dosage: 100 MG/DAY
     Route: 048
     Dates: end: 20141214
  6. TOLVAPTAN [Suspect]
     Active Substance: TOLVAPTAN
     Indication: OEDEMA DUE TO CARDIAC DISEASE
     Dosage: 3.75 MG, QD
     Route: 048
     Dates: start: 20140701, end: 20140714

REACTIONS (1)
  - Cardiac failure [Fatal]

NARRATIVE: CASE EVENT DATE: 20141214
